FAERS Safety Report 17444744 (Version 1)
Quarter: 2020Q1

REPORT INFORMATION
  Report Type: Spontaneous
  Country: PT (occurrence: PT)
  Receive Date: 20200221
  Receipt Date: 20200221
  Transmission Date: 20200409
  Serious: Yes (Other)
  Sender: FDA-Public Use
  Company Number: PT-TEVA-2020-PT-1189072

PATIENT
  Age: 41 Year
  Sex: Female

DRUGS (1)
  1. IBUPROFEN. [Suspect]
     Active Substance: IBUPROFEN
     Route: 065

REACTIONS (3)
  - Scleral oedema [Recovered/Resolved]
  - Face oedema [Recovered/Resolved]
  - Eyelid oedema [Recovered/Resolved]
